FAERS Safety Report 7650129-X (Version None)
Quarter: 2011Q3

REPORT INFORMATION
  Report Type: 
  Country: None (occurrence: None)
  Receive Date: 20110727
  Receipt Date: 20110711
  Transmission Date: 20111222
  Serious: Yes (Other)
  Sender: FDA-Public Use
  Company Number: 2011MA008584

PATIENT
  Age: 67 Year
  Sex: Male

DRUGS (4)
  1. ACYCLOVIR [Suspect]
  2. MYCOPHENOLATE MOFETIL [Concomitant]
  3. TACROLIMUS [Concomitant]
  4. POSACONAZOLE [Concomitant]

REACTIONS (5)
  - ANAEMIA [None]
  - NEUTROPENIA [None]
  - THROMBOCYTOPENIA [None]
  - NEUTROPHIL PELGER-HUET ANOMALY PRESENT [None]
  - WHITE BLOOD CELL COUNT DECREASED [None]
